FAERS Safety Report 5509287-5 (Version None)
Quarter: 2007Q4

REPORT INFORMATION
  Report Type: 
  Country: None (occurrence: None)
  Receive Date: 20071030
  Receipt Date: 20061222
  Transmission Date: 20080405
  Serious: Yes (Other)
  Sender: FDA-Public Use
  Company Number: HQWYE204102JAN07

PATIENT
  Sex: Female

DRUGS (2)
  1. PREMARIN [Suspect]
     Indication: HORMONE REPLACEMENT THERAPY
     Dates: start: 19930101, end: 20030101
  2. ESTRATEST [Suspect]
     Indication: HORMONE REPLACEMENT THERAPY

REACTIONS (1)
  - OVARIAN CANCER [None]
